FAERS Safety Report 6372397-7 (Version None)
Quarter: 2009Q3

REPORT INFORMATION
  Report Type: 
  Country: None (occurrence: None)
  Receive Date: 20090924
  Receipt Date: 20080923
  Transmission Date: 20100115
  Serious: Yes (Other)
  Sender: FDA-Public Use
  Company Number: US-ASTRAZENECA-2008UW21850

PATIENT
  Age: 42 Year
  Sex: Male

DRUGS (5)
  1. SEROQUEL [Suspect]
     Indication: BIPOLAR I DISORDER
     Dosage: 300MG
     Route: 048
  2. SEROQUEL [Suspect]
     Indication: PSYCHOTIC DISORDER
     Dosage: 300MG
     Route: 048
  3. XANAX [Concomitant]
  4. LEXAPRO [Concomitant]
     Dosage: 10MG
  5. LOVASTATIN [Concomitant]

REACTIONS (4)
  - BLOOD CHOLESTEROL [None]
  - BLOOD GLUCOSE INCREASED [None]
  - BLOOD TRIGLYCERIDES INCREASED [None]
  - WEIGHT INCREASED [None]
